FAERS Safety Report 16971263 (Version 14)
Quarter: 2024Q4

REPORT INFORMATION
  Report Type: Spontaneous
  Country: CA (occurrence: CA)
  Receive Date: 20191029
  Receipt Date: 20241127
  Transmission Date: 20250115
  Serious: Yes (Other)
  Sender: BAUSCH AND LOMB
  Company Number: CA-BAUSCH-BL-2019-059127

PATIENT
  Age: 34 Year
  Sex: Female
  Weight: 81 kg

DRUGS (70)
  1. WELLBUTRIN XL [Suspect]
     Active Substance: BUPROPION HYDROCHLORIDE
     Indication: Product used for unknown indication
     Dosage: EXTENDED RELEASE TABLET
     Route: 065
  2. WELLBUTRIN XL [Suspect]
     Active Substance: BUPROPION HYDROCHLORIDE
     Route: 065
  3. WELLBUTRIN XL [Suspect]
     Active Substance: BUPROPION HYDROCHLORIDE
     Dosage: EXTENDED/PROLONGED RELEASE TABLET, 2 ADMINISTRATION.
     Route: 048
  4. WELLBUTRIN XL [Suspect]
     Active Substance: BUPROPION HYDROCHLORIDE
     Dosage: EXTENDED/PROLONGED RELEASE TABLET
     Route: 065
  5. WELLBUTRIN XL [Suspect]
     Active Substance: BUPROPION HYDROCHLORIDE
     Dosage: EXTENDED/PROLONGED RELEASE TABLET
     Route: 065
  6. WELLBUTRIN XL [Suspect]
     Active Substance: BUPROPION HYDROCHLORIDE
     Dosage: PROLONGED RELEASE TABLET
     Route: 065
  7. WELLBUTRIN XL [Suspect]
     Active Substance: BUPROPION HYDROCHLORIDE
     Dosage: PROLONGED RELEASE TABLET
     Route: 048
  8. WELLBUTRIN XL [Suspect]
     Active Substance: BUPROPION HYDROCHLORIDE
     Dosage: PROLONGED RELEASE TABLET
     Route: 065
  9. BUPROPION [Suspect]
     Active Substance: BUPROPION
     Indication: Product used for unknown indication
     Route: 065
  10. BUPROPION [Suspect]
     Active Substance: BUPROPION
     Route: 048
  11. BUPROPION [Suspect]
     Active Substance: BUPROPION
     Route: 065
  12. BUPROPION [Suspect]
     Active Substance: BUPROPION
     Route: 065
  13. BUPROPION [Suspect]
     Active Substance: BUPROPION
     Dosage: 2 ADMINISTRATIONS.
     Route: 065
  14. BUPROPION [Suspect]
     Active Substance: BUPROPION
     Route: 065
  15. BUPROPION [Suspect]
     Active Substance: BUPROPION
     Dosage: 2 ADMINISTRATIONS
     Route: 065
  16. BUPROPION [Suspect]
     Active Substance: BUPROPION
     Route: 065
  17. BUPROPION [Suspect]
     Active Substance: BUPROPION
     Dosage: 3 ADMINISTRATIONS
     Route: 048
  18. BUPROPION [Suspect]
     Active Substance: BUPROPION
     Route: 065
  19. BUPROPION [Suspect]
     Active Substance: BUPROPION
     Route: 065
  20. AKNE-MYCIN [Suspect]
     Active Substance: ERYTHROMYCIN
     Indication: Product used for unknown indication
     Route: 065
  21. TRETINOIN [Suspect]
     Active Substance: TRETINOIN
     Indication: Acne
     Dosage: 2 ADMINISTRATIONS.
     Route: 061
  22. TRETINOIN [Suspect]
     Active Substance: TRETINOIN
     Route: 061
  23. ERYTHROMYCIN [Suspect]
     Active Substance: ERYTHROMYCIN
     Indication: Acne
     Dosage: 3 ADMINISTRATIONS.
     Route: 065
  24. ERYTHROMYCIN [Suspect]
     Active Substance: ERYTHROMYCIN
     Route: 065
  25. ERYTHROMYCIN [Suspect]
     Active Substance: ERYTHROMYCIN
     Route: 061
  26. BENZOYL PEROXIDE\CLINDAMYCIN [Suspect]
     Active Substance: BENZOYL PEROXIDE\CLINDAMYCIN
     Indication: Product used for unknown indication
     Route: 061
  27. BENZOYL PEROXIDE\CLINDAMYCIN [Suspect]
     Active Substance: BENZOYL PEROXIDE\CLINDAMYCIN
     Route: 061
  28. BENZOYL PEROXIDE\CLINDAMYCIN [Suspect]
     Active Substance: BENZOYL PEROXIDE\CLINDAMYCIN
     Route: 061
  29. ERYTHROMYCIN [Suspect]
     Active Substance: ERYTHROMYCIN
     Indication: Acne
     Route: 061
  30. ERYTHROMYCIN [Suspect]
     Active Substance: ERYTHROMYCIN
     Route: 061
  31. CYMBALTA [Suspect]
     Active Substance: DULOXETINE HYDROCHLORIDE
     Indication: Product used for unknown indication
     Route: 065
  32. CYMBALTA [Suspect]
     Active Substance: DULOXETINE HYDROCHLORIDE
     Dosage: CAPSULE, DELAYED RELEASE
     Route: 048
  33. CYMBALTA [Suspect]
     Active Substance: DULOXETINE HYDROCHLORIDE
     Route: 065
  34. CYMBALTA [Suspect]
     Active Substance: DULOXETINE HYDROCHLORIDE
     Dosage: CAPSULE, DELAYED RELEASE, 2 ADMINISTRATIONS.
     Route: 065
  35. CYMBALTA [Suspect]
     Active Substance: DULOXETINE HYDROCHLORIDE
     Dosage: CAPSULE, DELAYED RELEASE
     Route: 065
  36. CYMBALTA [Suspect]
     Active Substance: DULOXETINE HYDROCHLORIDE
     Dosage: CAPSULE, DELAYED RELEASE
     Route: 048
  37. ERYTHROMYCIN\TRETINOIN [Suspect]
     Active Substance: ERYTHROMYCIN\TRETINOIN
     Indication: Acne
     Route: 061
  38. ERYTHROMYCIN\TRETINOIN [Suspect]
     Active Substance: ERYTHROMYCIN\TRETINOIN
     Route: 065
  39. QUETIAPINE [Suspect]
     Active Substance: QUETIAPINE
     Indication: Product used for unknown indication
     Dosage: 2 ADMINISTRATIONS.
     Route: 048
  40. QUETIAPINE [Suspect]
     Active Substance: QUETIAPINE
     Route: 048
  41. QUETIAPINE [Suspect]
     Active Substance: QUETIAPINE
     Route: 065
  42. QUETIAPINE [Suspect]
     Active Substance: QUETIAPINE
     Route: 048
  43. QUETIAPINE [Suspect]
     Active Substance: QUETIAPINE
     Route: 048
  44. QUETIAPINE [Suspect]
     Active Substance: QUETIAPINE
     Route: 048
  45. QUETIAPINE [Suspect]
     Active Substance: QUETIAPINE
     Dosage: 3 ADMINISTRATIONS.
     Route: 048
  46. QUETIAPINE [Suspect]
     Active Substance: QUETIAPINE
     Dosage: QUETIAPINE FUMARATE
     Route: 048
  47. ERYTHROMYCIN [Suspect]
     Active Substance: ERYTHROMYCIN
     Indication: Acne
     Dosage: ERYTHROMYCIN PROPIONATE
     Route: 065
  48. ERYTHROMYCIN [Suspect]
     Active Substance: ERYTHROMYCIN
     Dosage: ERYTHROMYCIN PROPIONATE
     Route: 065
  49. ERYTHROMYCIN [Suspect]
     Active Substance: ERYTHROMYCIN
     Dosage: ERYTHROMYCIN
     Route: 061
  50. DULOXETINE [Suspect]
     Active Substance: DULOXETINE
     Indication: Product used for unknown indication
     Route: 048
  51. DULOXETINE [Suspect]
     Active Substance: DULOXETINE
     Route: 048
  52. DULOXETINE [Suspect]
     Active Substance: DULOXETINE
     Dosage: CAPSULE, DELAYED RELEASE
     Route: 065
  53. DULOXETINE [Suspect]
     Active Substance: DULOXETINE
     Dosage: NOT SPECIFIED
     Route: 065
  54. DULOXETINE [Suspect]
     Active Substance: DULOXETINE
     Dosage: NOT SPECIFIED
     Route: 048
  55. DULOXETINE [Suspect]
     Active Substance: DULOXETINE
     Dosage: NOT SPECIFIED
     Route: 065
  56. DULOXETINE [Suspect]
     Active Substance: DULOXETINE
     Dosage: 2 ADMINISTRATIONS.
     Route: 065
  57. DULOXETINE [Suspect]
     Active Substance: DULOXETINE
     Route: 065
  58. DULOXETINE [Suspect]
     Active Substance: DULOXETINE
     Indication: Product used for unknown indication
     Route: 065
  59. DULOXETINE [Suspect]
     Active Substance: DULOXETINE
     Dosage: DULOXETINE HYDROCHLORIDE
     Route: 065
  60. DULOXETINE [Suspect]
     Active Substance: DULOXETINE
     Dosage: DULOXETINE HYDROCHLORIDE
     Route: 065
  61. DULOXETINE [Suspect]
     Active Substance: DULOXETINE
     Dosage: DULOXETINE HYDROCHLORIDE
     Route: 065
  62. DULOXETINE [Suspect]
     Active Substance: DULOXETINE
     Dosage: DULOXETINE HYDROCHLORIDE
     Route: 065
  63. BENZOYL PEROXIDE\CLINDAMYCIN [Suspect]
     Active Substance: BENZOYL PEROXIDE\CLINDAMYCIN
     Indication: Product used for unknown indication
     Route: 065
  64. BENZOYL PEROXIDE\CLINDAMYCIN [Suspect]
     Active Substance: BENZOYL PEROXIDE\CLINDAMYCIN
     Route: 062
  65. BENZOYL PEROXIDE\CLINDAMYCIN [Suspect]
     Active Substance: BENZOYL PEROXIDE\CLINDAMYCIN
     Route: 061
  66. BENZOYL PEROXIDE\CLINDAMYCIN [Suspect]
     Active Substance: BENZOYL PEROXIDE\CLINDAMYCIN
     Route: 065
  67. BUPROPION HYDROBROMIDE [Suspect]
     Active Substance: BUPROPION HYDROBROMIDE
     Indication: Product used for unknown indication
     Route: 061
  68. BUPROPION HYDROBROMIDE [Suspect]
     Active Substance: BUPROPION HYDROBROMIDE
     Route: 061
  69. BUPROPION HYDROBROMIDE [Suspect]
     Active Substance: BUPROPION HYDROBROMIDE
     Route: 061
  70. BUPROPION HYDROBROMIDE [Suspect]
     Active Substance: BUPROPION HYDROBROMIDE
     Route: 061

REACTIONS (2)
  - Abortion spontaneous [Unknown]
  - Maternal exposure during pregnancy [Unknown]
